FAERS Safety Report 14933412 (Version 3)
Quarter: 2018Q2

REPORT INFORMATION
  Report Type: Spontaneous
  Country: JP (occurrence: JP)
  Receive Date: 20180524
  Receipt Date: 20180613
  Transmission Date: 20180711
  Serious: Yes (Life-Threatening, Hospitalization, Other)
  Sender: FDA-Public Use
  Company Number: JP-ASTELLAS-2017JP011369

PATIENT
  Age: 34 Year
  Sex: Female
  Weight: 42 kg

DRUGS (28)
  1. PROGRAF [Suspect]
     Active Substance: TACROLIMUS\TACROLIMUS ANHYDROUS
     Indication: SYSTEMIC LUPUS ERYTHEMATOSUS
     Route: 048
  2. GASTER [Suspect]
     Active Substance: FAMOTIDINE
     Route: 048
     Dates: start: 20170530, end: 2017
  3. PREDNISOLONE. [Concomitant]
     Active Substance: PREDNISOLONE
     Indication: PRODUCT USED FOR UNKNOWN INDICATION
     Route: 048
     Dates: end: 20170529
  4. DACTIL [Concomitant]
     Indication: PRODUCT USED FOR UNKNOWN INDICATION
     Route: 048
     Dates: start: 20170612, end: 2017
  5. GASTER [Suspect]
     Active Substance: FAMOTIDINE
     Indication: PROPHYLAXIS AGAINST GASTROINTESTINAL ULCER
     Route: 048
     Dates: start: 20110729
  6. PHYSIOLOGICAL SALINE SOLUTION [Concomitant]
     Active Substance: SODIUM CHLORIDE
     Indication: PRODUCT USED FOR UNKNOWN INDICATION
     Route: 065
     Dates: start: 20171213, end: 20171213
  7. PARTAN [Concomitant]
     Indication: ABORTION SPONTANEOUS COMPLETE
     Dosage: 1 TABLET, THRICE DAILY
     Route: 065
     Dates: start: 20170104, end: 20170108
  8. PREDNISOLONE. [Concomitant]
     Active Substance: PREDNISOLONE
     Route: 048
     Dates: start: 20170530, end: 2017
  9. MAGNESIUM OXIDE. [Concomitant]
     Active Substance: MAGNESIUM OXIDE
     Route: 048
     Dates: start: 20171209, end: 20171210
  10. RINDERON                           /00008501/ [Concomitant]
     Active Substance: BETAMETHASONE
     Indication: PREMATURE LABOUR
     Route: 030
     Dates: start: 20171013, end: 20171014
  11. MAGNESIUM OXIDE. [Concomitant]
     Active Substance: MAGNESIUM OXIDE
     Route: 048
     Dates: start: 20171202, end: 20171203
  12. MAGNESIUM OXIDE. [Concomitant]
     Active Substance: MAGNESIUM OXIDE
     Route: 048
     Dates: start: 20171211
  13. PROGRAF [Suspect]
     Active Substance: TACROLIMUS\TACROLIMUS ANHYDROUS
     Indication: LUPUS NEPHRITIS
     Dosage: DOSE BEING INCREASED AND REDUCED BETWEEN 3 MG AND 1 MG, ONCE DAILY
     Route: 048
     Dates: start: 20141107, end: 2017
  14. HUSCODE [Concomitant]
     Active Substance: CHLORPHENIRAMINE MALEAT\DIHYDROCODEINE PHOSPHATE\METHYLEPHEDRINE HYDROCHLORIDE, DL-
     Indication: PRODUCT USED FOR UNKNOWN INDICATION
     Dosage: 10 ML/DAY, THRICE DAILY
     Route: 048
     Dates: start: 20170815, end: 2017
  15. MAGSENT [Concomitant]
     Active Substance: DEXTROSE\MAGNESIUM SULFATE HEPTAHYDRATE
     Indication: PREMATURE LABOUR
     Route: 041
     Dates: start: 20171017, end: 20171223
  16. GASTER [Suspect]
     Active Substance: FAMOTIDINE
     Route: 048
  17. UTEMERIN [Suspect]
     Active Substance: RITODRINE
     Indication: PREMATURE LABOUR
     Route: 041
     Dates: start: 20171012, end: 20171223
  18. ADONA                              /00056903/ [Concomitant]
     Active Substance: CARBAZOCHROME SODIUM SULFONATE
     Indication: PRODUCT USED FOR UNKNOWN INDICATION
     Route: 048
     Dates: start: 20170612, end: 2017
  19. MUCODYNE [Concomitant]
     Active Substance: CARBOCYSTEINE
     Indication: PRODUCT USED FOR UNKNOWN INDICATION
     Route: 048
     Dates: start: 20170815, end: 2017
  20. MAGNESIUM OXIDE. [Concomitant]
     Active Substance: MAGNESIUM OXIDE
     Route: 048
     Dates: start: 20171204, end: 20171206
  21. MAGNESIUM OXIDE. [Concomitant]
     Active Substance: MAGNESIUM OXIDE
     Route: 048
     Dates: start: 20171207, end: 20171208
  22. GASTER [Suspect]
     Active Substance: FAMOTIDINE
     Route: 048
     Dates: end: 20170529
  23. GLUCOSE [Concomitant]
     Active Substance: DEXTROSE
     Indication: PRODUCT USED FOR UNKNOWN INDICATION
     Route: 065
     Dates: start: 2017
  24. PROGE [Concomitant]
     Indication: PREMATURE LABOUR
     Route: 030
     Dates: start: 20171019, end: 20171223
  25. MEROPEN                            /01250502/ [Concomitant]
     Active Substance: MEROPENEM
     Indication: SEPSIS
     Dosage: 0.5 G, THRICE DAILY
     Route: 041
     Dates: start: 20171218, end: 20171229
  26. MAGNESIUM OXIDE. [Concomitant]
     Active Substance: MAGNESIUM OXIDE
     Indication: PRODUCT USED FOR UNKNOWN INDICATION
     Route: 048
     Dates: end: 20171201
  27. SLOW-K [Concomitant]
     Active Substance: POTASSIUM CHLORIDE
     Indication: PRODUCT USED FOR UNKNOWN INDICATION
     Route: 048
     Dates: start: 20171212
  28. CLOMID [Concomitant]
     Active Substance: CLOMIPHENE CITRATE
     Indication: INFERTILITY
     Dosage: UNK UNK, UNKNOWN FREQ.
     Route: 065

REACTIONS (5)
  - Maternal exposure during pregnancy [Unknown]
  - Premature delivery [Unknown]
  - Premature labour [Recovered/Resolved]
  - Device related sepsis [Recovered/Resolved]
  - Pulmonary oedema [Recovered/Resolved]

NARRATIVE: CASE EVENT DATE: 2017
